FAERS Safety Report 8217348-5 (Version None)
Quarter: 2012Q1

REPORT INFORMATION
  Report Type: 
  Country: None (occurrence: None)
  Receive Date: 20120313
  Receipt Date: 20120307
  Transmission Date: 20120608
  Serious: Yes (Hospitalization)
  Sender: FDA-Public Use
  Company Number: SP05589

PATIENT
  Age: 65 Year
  Sex: Female

DRUGS (1)
  1. OSMOPREP [Suspect]
     Indication: BOWEL PREPARATION
     Dosage: (32 DOSAGE FORMS), ORAL
     Route: 048
     Dates: start: 20120101, end: 20120101

REACTIONS (3)
  - PROCEDURAL COMPLICATION [None]
  - ATRIAL FIBRILLATION [None]
  - HYPOKALAEMIA [None]
